APPROVED DRUG PRODUCT: SYMJEPI
Active Ingredient: EPINEPHRINE
Strength: 0.15MG/0.3ML (0.15MG/0.3ML)
Dosage Form/Route: SOLUTION;INTRAMUSCULAR, SUBCUTANEOUS
Application: N207534 | Product #002
Applicant: ADAMIS PHARMACEUTICALS CORP
Approved: Sep 27, 2018 | RLD: Yes | RS: No | Type: DISCN

PATENTS:
Patent 11141540 | Expires: Oct 20, 2036